FAERS Safety Report 4718438-1 (Version None)
Quarter: 2005Q3

REPORT INFORMATION
  Report Type: 
  Country: None (occurrence: None)
  Receive Date: 20050719
  Receipt Date: 20050103
  Transmission Date: 20060218
  Serious: Yes (Other)
  Sender: FDA-Public Use
  Company Number: 2004109793

PATIENT
  Age: 46 Year
  Sex: Male
  Weight: 75.7507 kg

DRUGS (6)
  1. CELEBREX [Suspect]
     Indication: PAIN MANAGEMENT
     Dosage: 200 MG (200 MG, 1 IN 1 D), ORAL
     Route: 048
     Dates: start: 20040510, end: 20040923
  2. NEURONTIN [Concomitant]
  3. METHOCARBAMOL [Concomitant]
  4. RANITIDINE HYDROCHLORIDE [Concomitant]
  5. FAMOTIDINE [Concomitant]
  6. ZOLPIDEM TARTRATE [Concomitant]

REACTIONS (5)
  - CONSTIPATION [None]
  - DYSPEPSIA [None]
  - GASTRIC ULCER [None]
  - GASTRITIS [None]
  - STOMACH DISCOMFORT [None]
